FAERS Safety Report 6317262-6 (Version None)
Quarter: 2009Q3

REPORT INFORMATION
  Report Type: 
  Country: None (occurrence: None)
  Receive Date: 20090820
  Receipt Date: 20090811
  Transmission Date: 20100115
  Serious: Yes (Hospitalization)
  Sender: FDA-Public Use
  Company Number: JP-ABBOTT-09P-087-0590626-00

PATIENT
  Age: 69 Year
  Sex: Male

DRUGS (1)
  1. CLARITH [Suspect]
     Indication: LUNG ABSCESS
     Route: 048
     Dates: start: 20080630, end: 20090728

REACTIONS (1)
  - RENAL FAILURE ACUTE [None]
